FAERS Safety Report 14241301 (Version 3)
Quarter: 2019Q4

REPORT INFORMATION
  Report Type: Report from Study
  Country: None (occurrence: KR)
  Receive Date: 20171130
  Receipt Date: 20191010
  Transmission Date: 20200122
  Serious: Yes (Hospitalization)
  Sender: FDA-Public Use
  Company Number: KR-ABBVIE-17K-090-2179580-00

PATIENT
  Age: 62 Year
  Sex: Male
  Weight: 62 kg

DRUGS (46)
  1. TIZANIDINE. [Concomitant]
     Active Substance: TIZANIDINE
     Indication: VESTIBULAR MIGRAINE
     Route: 048
     Dates: start: 20170830, end: 20170905
  2. HUMIRA [Suspect]
     Active Substance: ADALIMUMAB
     Route: 058
     Dates: start: 20170927
  3. ZOPYRIN [Concomitant]
     Indication: BEHCET^S SYNDROME
     Route: 048
     Dates: start: 20170904
  4. ACLOFEN [Concomitant]
     Indication: OSTEONECROSIS
     Route: 048
     Dates: start: 20170904, end: 20170905
  5. TROPHERINE [Concomitant]
     Indication: FUNDOSCOPY
     Route: 050
     Dates: start: 20170904, end: 20170905
  6. ZYPREXA [Concomitant]
     Active Substance: OLANZAPINE
     Indication: AFFECTIVE DISORDER
     Route: 048
     Dates: start: 20170908
  7. FOLATE [Concomitant]
     Active Substance: FOLATE SODIUM
     Indication: VITAMIN SUPPLEMENTATION
     Route: 048
     Dates: start: 20170726
  8. MIRTAZAPINE. [Concomitant]
     Active Substance: MIRTAZAPINE
     Indication: AFFECTIVE DISORDER
     Route: 048
     Dates: start: 20170831, end: 20170905
  9. OLANZAPINE. [Concomitant]
     Active Substance: OLANZAPINE
     Indication: PRODUCT USED FOR UNKNOWN INDICATION
  10. COLCHICINE. [Concomitant]
     Active Substance: COLCHICINE
     Indication: PROPHYLAXIS
     Route: 048
     Dates: start: 20170726, end: 20170905
  11. AZAPRINE [Concomitant]
     Active Substance: AZATHIOPRINE
     Dates: start: 20170907
  12. FOLIC ACID. [Concomitant]
     Active Substance: FOLIC ACID
     Indication: VITAMIN SUPPLEMENTATION
     Route: 048
     Dates: start: 20170904
  13. SOLONDO [Concomitant]
     Active Substance: PREDNISOLONE
     Indication: BEHCET^S SYNDROME
     Route: 048
     Dates: start: 20170904, end: 20170912
  14. SOLONDO [Concomitant]
     Active Substance: PREDNISOLONE
     Route: 048
     Dates: start: 20170912
  15. CARMAZEPINE [Concomitant]
     Indication: NEUROPATHY PERIPHERAL
     Route: 048
     Dates: start: 20170830, end: 20170906
  16. ASPIRIN. [Concomitant]
     Active Substance: ASPIRIN
     Route: 048
     Dates: start: 20170912, end: 20170912
  17. MIRTAPIN [Concomitant]
     Indication: AFFECTIVE DISORDER
     Route: 048
     Dates: start: 20170905, end: 20170905
  18. SEROQUEL [Concomitant]
     Active Substance: QUETIAPINE FUMARATE
     Indication: AFFECTIVE DISORDER
     Route: 048
     Dates: start: 20170906, end: 20170906
  19. PREDNISOLONE. [Concomitant]
     Active Substance: PREDNISOLONE
     Indication: BEHCET^S SYNDROME
     Route: 048
     Dates: start: 20170726, end: 20170912
  20. ASPIRIN. [Concomitant]
     Active Substance: ASPIRIN
     Indication: OSTEONECROSIS
     Route: 048
     Dates: start: 20170830, end: 20170911
  21. REMERON [Concomitant]
     Active Substance: MIRTAZAPINE
     Indication: AFFECTIVE DISORDER
     Route: 048
     Dates: start: 20170904, end: 20170904
  22. PLETAAL [Concomitant]
     Active Substance: CILOSTAZOL
     Indication: PROPHYLAXIS
     Route: 048
     Dates: start: 20170908, end: 20170912
  23. DUPHALAC SYRUP [Concomitant]
     Active Substance: LACTULOSE
     Indication: CONSTIPATION PROPHYLAXIS
     Route: 048
     Dates: start: 20170910, end: 20170910
  24. SULFASALAZINE. [Concomitant]
     Active Substance: SULFASALAZINE
     Indication: BEHCET^S SYNDROME
     Route: 048
     Dates: start: 20170726
  25. ISONIAZID. [Concomitant]
     Active Substance: ISONIAZID
     Indication: LATENT TUBERCULOSIS
     Route: 048
     Dates: start: 20170830, end: 20170905
  26. AZAPRINE [Concomitant]
     Active Substance: AZATHIOPRINE
     Indication: BEHCET^S SYNDROME
     Route: 048
     Dates: start: 20170904, end: 20170905
  27. ACLOFEN [Concomitant]
     Route: 048
     Dates: start: 20170907, end: 20170912
  28. AZATHIOPRINE. [Concomitant]
     Active Substance: AZATHIOPRINE
     Indication: BEHCET^S SYNDROME
     Route: 048
     Dates: start: 20170726, end: 20170905
  29. ACECLOFENAC [Concomitant]
     Active Substance: ACECLOFENAC
     Indication: OSTEONECROSIS
     Route: 048
     Dates: start: 20170830, end: 20170905
  30. HUMIRA [Suspect]
     Active Substance: ADALIMUMAB
     Route: 058
     Dates: start: 20170919, end: 20170919
  31. YUHANZID [Concomitant]
     Active Substance: ISONIAZID
     Route: 048
     Dates: start: 20170907
  32. TARGIN [Concomitant]
     Active Substance: NALOXONE HYDROCHLORIDE\OXYCODONE HYDROCHLORIDE
     Route: 048
     Dates: start: 20170908, end: 20170912
  33. MYGRIZINE [Concomitant]
     Indication: VESTIBULAR MIGRAINE
     Route: 048
     Dates: start: 20170927, end: 20171006
  34. DIVALPROEX [Concomitant]
     Active Substance: DIVALPROEX SODIUM
     Indication: NEUROPATHY PERIPHERAL
     Route: 048
     Dates: start: 20170907, end: 20170912
  35. QUETIAPINE. [Concomitant]
     Active Substance: QUETIAPINE
     Indication: PRODUCT USED FOR UNKNOWN INDICATION
  36. HUMIRA [Suspect]
     Active Substance: ADALIMUMAB
     Route: 058
     Dates: start: 20170905, end: 20170905
  37. SIRDALUD [Concomitant]
     Active Substance: TIZANIDINE
     Route: 048
     Dates: start: 20170907, end: 20170912
  38. TARGIN [Concomitant]
     Active Substance: NALOXONE HYDROCHLORIDE\OXYCODONE HYDROCHLORIDE
     Indication: VESTIBULAR MIGRAINE
     Route: 048
     Dates: start: 20170907, end: 20170907
  39. COLCHIN [Concomitant]
     Indication: PROPHYLAXIS
     Route: 048
     Dates: start: 20170907
  40. ISONIAZID. [Concomitant]
     Active Substance: ISONIAZID
     Route: 048
     Dates: start: 20170907, end: 20180703
  41. HUMIRA [Suspect]
     Active Substance: ADALIMUMAB
     Indication: BEHCET^S SYNDROME
     Route: 058
     Dates: start: 20160726, end: 20160726
  42. WINUF INJECTION [Concomitant]
     Indication: NUTRITIONAL SUPPLEMENTATION
     Route: 042
     Dates: start: 20170831, end: 20170904
  43. YUHANZID [Concomitant]
     Active Substance: ISONIAZID
     Indication: LATENT TUBERCULOSIS
     Route: 048
     Dates: start: 20170904, end: 20170905
  44. FEROBA YOU [Concomitant]
     Indication: PROPHYLAXIS
     Route: 048
     Dates: start: 20170726
  45. SIRDALUD [Concomitant]
     Active Substance: TIZANIDINE
     Indication: VESTIBULAR MIGRAINE
     Route: 048
     Dates: start: 20170904, end: 20170905
  46. TEGRETOL [Concomitant]
     Active Substance: CARBAMAZEPINE
     Indication: NEUROPATHY PERIPHERAL
     Route: 048
     Dates: start: 20170907, end: 20170912

REACTIONS (2)
  - Dizziness [Recovered/Resolved]
  - Hypophagia [Recovered/Resolved]

NARRATIVE: CASE EVENT DATE: 20170830
